FAERS Safety Report 9698425 (Version 2)
Quarter: 2013Q4

REPORT INFORMATION
  Report Type: Spontaneous
  Country: US (occurrence: US)
  Receive Date: 20131120
  Receipt Date: 20131120
  Transmission Date: 20140711
  Serious: Yes (Hospitalization)
  Sender: FDA-Public Use
  Company Number: US-BAXTER-2013BAX044537

PATIENT
  Age: 64 Year
  Sex: Male

DRUGS (6)
  1. DIANEAL LOW CALCIUM [Suspect]
     Indication: PERITONEAL DIALYSIS
     Route: 033
     Dates: start: 201301, end: 201310
  2. DIANEAL LOW CALCIUM [Suspect]
     Route: 033
     Dates: start: 201301, end: 201310
  3. DIANEAL LOW CALCIUM [Suspect]
     Indication: PERITONEAL DIALYSIS
     Route: 033
     Dates: start: 201301, end: 201310
  4. DIANEAL LOW CALCIUM [Suspect]
     Route: 033
     Dates: start: 201301, end: 201310
  5. LEVOTHYROXINE [Concomitant]
     Indication: HYPOTHYROIDISM
  6. METOPROLOL [Concomitant]
     Indication: HYPERTENSION

REACTIONS (1)
  - Cholecystitis [Recovered/Resolved]
